FAERS Safety Report 7631549-6 (Version None)
Quarter: 2011Q3

REPORT INFORMATION
  Report Type: 
  Country: None (occurrence: None)
  Receive Date: 20110725
  Receipt Date: 20110715
  Transmission Date: 20111222
  Serious: Yes (Hospitalization)
  Sender: FDA-Public Use
  Company Number: US-ASTELLAS-2011US004027

PATIENT
  Sex: Male
  Weight: 107 kg

DRUGS (3)
  1. CELLCEPT [Concomitant]
     Indication: PRODUCT USED FOR UNKNOWN INDICATION
     Dosage: 1000 MG, BID
     Route: 048
  2. PROGRAF [Suspect]
     Indication: LIVER TRANSPLANT
     Dosage: 4 MG, BID
     Route: 048
     Dates: start: 20010120
  3. PREDNISONE [Concomitant]
     Indication: PRODUCT USED FOR UNKNOWN INDICATION
     Dosage: 15 MG, UID/QD
     Route: 048

REACTIONS (1)
  - APPENDICECTOMY [None]
